FAERS Safety Report 5532588-1 (Version None)
Quarter: 2007Q4

REPORT INFORMATION
  Report Type: 
  Country: None (occurrence: None)
  Receive Date: 20071203
  Receipt Date: 20071127
  Transmission Date: 20080405
  Serious: Yes (Hospitalization)
  Sender: FDA-Public Use
  Company Number: US-BOEHRINGER INGELHEIM PHARMACEUTICALS, INC.-2006-BP-07960BP

PATIENT
  Age: 75 Year
  Sex: Male

DRUGS (4)
  1. FLOMAX [Suspect]
     Indication: BENIGN PROSTATIC HYPERPLASIA
     Route: 048
     Dates: start: 20040101
  2. FLOMAX [Suspect]
     Route: 048
     Dates: start: 20040101
  3. AVODART [Suspect]
  4. VERAPAMIL [Concomitant]
     Indication: HYPERTENSION

REACTIONS (6)
  - CHEST PAIN [None]
  - CONSTIPATION [None]
  - DIZZINESS [None]
  - NASAL CONGESTION [None]
  - NOCTURIA [None]
  - POLLAKIURIA [None]
